FAERS Safety Report 10049715 (Version 4)
Quarter: 2014Q2

REPORT INFORMATION
  Report Type: Report from Study
  Country: CA (occurrence: CA)
  Receive Date: 20140401
  Receipt Date: 20140528
  Transmission Date: 20141212
  Serious: Yes (Death, Hospitalization)
  Sender: FDA-Public Use
  Company Number: CA-ROCHE-1374227

PATIENT
  Age: 22 Year
  Sex: Female

DRUGS (12)
  1. RITUXAN [Suspect]
     Indication: GRAFT VERSUS HOST DISEASE
     Route: 042
     Dates: start: 20140311, end: 20140318
  2. LEVEMIR [Concomitant]
  3. TACROLIMUS [Concomitant]
  4. AZATHIOPRINE [Concomitant]
  5. URSODIOL [Concomitant]
  6. CHOLESTYRAMINE [Concomitant]
  7. PREDNISONE [Concomitant]
  8. INSULIN HUMALOG [Concomitant]
  9. ATIVAN [Concomitant]
  10. MORPHINE [Concomitant]
  11. TYLENOL [Concomitant]
     Indication: PREMEDICATION
     Route: 048
     Dates: start: 20140311, end: 20140318
  12. BENADRYL (CANADA) [Concomitant]
     Indication: PREMEDICATION
     Route: 048
     Dates: start: 20140311, end: 20140318

REACTIONS (4)
  - Blood bilirubin increased [Not Recovered/Not Resolved]
  - Blood count abnormal [Not Recovered/Not Resolved]
  - Off label use [Unknown]
  - Hepatic failure [Fatal]
